FAERS Safety Report 4922757-3 (Version None)
Quarter: 2006Q1

REPORT INFORMATION
  Report Type: 
  Country: None (occurrence: None)
  Receive Date: 20060224
  Receipt Date: 20050112
  Transmission Date: 20060701
  Serious: Yes (Hospitalization, Disabling)
  Sender: FDA-Public Use
  Company Number: US-MERCK-0501USA01944

PATIENT
  Age: 64 Year
  Sex: Female
  Weight: 68 kg

DRUGS (2)
  1. VIOXX [Suspect]
     Indication: ROTATOR CUFF SYNDROME
     Route: 048
     Dates: start: 20010511, end: 20031217
  2. VIOXX [Suspect]
     Indication: SHOULDER OPERATION
     Route: 048
     Dates: start: 20010511, end: 20031217

REACTIONS (3)
  - ARTHROPATHY [None]
  - CORONARY ARTERY DISEASE [None]
  - MYOCARDIAL INFARCTION [None]
